FAERS Safety Report 9611093 (Version 1)
Quarter: 2013Q4

REPORT INFORMATION
  Report Type: Spontaneous
  Country: US (occurrence: US)
  Receive Date: 20131009
  Receipt Date: 20131009
  Transmission Date: 20140711
  Serious: No
  Sender: FDA-Public Use
  Company Number: US-SAVIENT-2013S1000095

PATIENT
  Age: 60 Year
  Sex: Male

DRUGS (2)
  1. KRYSTEXXA [Suspect]
     Indication: PRODUCT USED FOR UNKNOWN INDICATION
     Route: 042
     Dates: start: 201303
  2. BENADRYL [Concomitant]
     Indication: ALLERGY PROPHYLAXIS

REACTIONS (1)
  - Arthralgia [Recovered/Resolved]
